FAERS Safety Report 5006829-3 (Version None)
Quarter: 2006Q2

REPORT INFORMATION
  Report Type: 
  Country: None (occurrence: None)
  Receive Date: 20060519
  Receipt Date: 20060509
  Transmission Date: 20061013
  Serious: Yes (Other)
  Sender: FDA-Public Use
  Company Number: US-BRISTOL-MYERS SQUIBB COMPANY-13373196

PATIENT
  Age: 45 Year
  Sex: Female

DRUGS (1)
  1. KENALOG-40 [Suspect]
     Indication: MACULAR OEDEMA
     Route: 011
     Dates: start: 20060426, end: 20060426

REACTIONS (3)
  - BLINDNESS [None]
  - ENDOPHTHALMITIS [None]
  - HYPOPYON [None]
